FAERS Safety Report 10261256 (Version 1)
Quarter: 2014Q2

REPORT INFORMATION
  Report Type: Spontaneous
  Country: GB (occurrence: GB)
  Receive Date: 20140626
  Receipt Date: 20140626
  Transmission Date: 20141212
  Serious: Yes (Other)
  Sender: FDA-Public Use
  Company Number: GB-CELGENEUS-167-21660-14062382

PATIENT
  Age: 66 Year
  Sex: Female
  Weight: 62.2 kg

DRUGS (2)
  1. ABRAXANE [Suspect]
     Indication: BREAST CANCER
     Route: 041
     Dates: start: 20110707
  2. AVASTIN [Suspect]
     Indication: BREAST CANCER
     Route: 041
     Dates: start: 20110707

REACTIONS (1)
  - Thrombosis in device [Not Recovered/Not Resolved]
